FAERS Safety Report 11861463 (Version 1)
Quarter: 2015Q4

REPORT INFORMATION
  Report Type: Spontaneous
  Country: US (occurrence: US)
  Receive Date: 20151222
  Receipt Date: 20151222
  Transmission Date: 20160305
  Serious: No
  Sender: FDA-Public Use
  Company Number: US-AVANIR PHARMACEUTICALS, INC.-2014NUEUSA00390

PATIENT
  Sex: Male

DRUGS (1)
  1. NUEDEXTA [Suspect]
     Active Substance: DEXTROMETHORPHAN HYDROBROMIDE\QUINIDINE SULFATE
     Indication: PRODUCT USED FOR UNKNOWN INDICATION
     Dosage: 1 CAP, Q12 HRS
     Dates: start: 20141002, end: 20141003

REACTIONS (2)
  - Inappropriate schedule of drug administration [Recovering/Resolving]
  - Diarrhoea [Recovering/Resolving]

NARRATIVE: CASE EVENT DATE: 20141002
